APPROVED DRUG PRODUCT: CARBIDOPA AND LEVODOPA
Active Ingredient: CARBIDOPA; LEVODOPA
Strength: 25MG;250MG
Dosage Form/Route: TABLET;ORAL
Application: A090324 | Product #003
Applicant: PHARMOBEDIENT CONSULTING LLC
Approved: Sep 28, 2009 | RLD: No | RS: No | Type: DISCN